FAERS Safety Report 17202016 (Version 1)
Quarter: 2019Q4

REPORT INFORMATION
  Report Type: Spontaneous
  Country: GB (occurrence: GB)
  Receive Date: 20191226
  Receipt Date: 20191226
  Transmission Date: 20200122
  Serious: Yes (Other)
  Sender: FDA-Public Use
  Company Number: GB-PFIZER INC-2019549414

PATIENT
  Age: 30 Year
  Sex: Male
  Weight: 79 kg

DRUGS (3)
  1. COCODAMOL [Concomitant]
     Active Substance: ACETAMINOPHEN\CODEINE PHOSPHATE
     Dosage: UNK, 4X/DAY (1 OR 2)
     Dates: start: 20191111
  2. SERTRALINE HCL [Suspect]
     Active Substance: SERTRALINE HYDROCHLORIDE
     Dosage: 50 MG, 1X/DAY
     Dates: start: 20191029
  3. QUETIAPINE. [Concomitant]
     Active Substance: QUETIAPINE
     Dosage: 4 DF, UNK (EVERY ONE HOUR)
     Dates: start: 20190523

REACTIONS (1)
  - Sleep terror [Recovered/Resolved]
